FAERS Safety Report 7936727-4 (Version None)
Quarter: 2011Q4

REPORT INFORMATION
  Report Type: 
  Country: None (occurrence: None)
  Receive Date: 20111123
  Receipt Date: 20111116
  Transmission Date: 20120403
  Serious: Yes (Other)
  Sender: FDA-Public Use
  Company Number: US-ABBOTT-11P-163-0874579-00

PATIENT
  Sex: Female
  Weight: 86.714 kg

DRUGS (7)
  1. MULTI-VITAMINS [Suspect]
     Indication: VITAMIN SUPPLEMENTATION
  2. ASACOL [Concomitant]
     Dates: start: 20110701
  3. HUMIRA [Suspect]
     Indication: PSORIASIS
  4. HUMIRA [Suspect]
     Indication: PSORIATIC ARTHROPATHY
     Dates: start: 20090101, end: 20110701
  5. ASACOL [Concomitant]
     Indication: COLITIS ULCERATIVE
     Dates: end: 20110701
  6. HUMIRA [Suspect]
     Indication: COLITIS ULCERATIVE
  7. LOVENOX [Concomitant]
     Indication: CONTRACEPTION
     Dates: end: 20110701

REACTIONS (13)
  - NASOPHARYNGITIS [None]
  - MALAISE [None]
  - HYPERHIDROSIS [None]
  - BLOOD PRESSURE DECREASED [None]
  - VOMITING IN PREGNANCY [None]
  - DIZZINESS [None]
  - DEHYDRATION [None]
  - BRONCHITIS [None]
  - HYPOTENSION [None]
  - SINUSITIS [None]
  - HEADACHE [None]
  - LOSS OF CONSCIOUSNESS [None]
  - HEART RATE DECREASED [None]
